FAERS Safety Report 16893503 (Version 1)
Quarter: 2019Q4

REPORT INFORMATION
  Report Type: Spontaneous
  Country: US (occurrence: US)
  Receive Date: 20191008
  Receipt Date: 20191008
  Transmission Date: 20200122
  Serious: Yes (Hospitalization)
  Sender: FDA-Public Use
  Company Number: US-ROCHE-2424515

PATIENT
  Sex: Female

DRUGS (46)
  1. HYDROXYCHLOROQUINE [Concomitant]
     Active Substance: HYDROXYCHLOROQUINE
  2. ROBAXIN [Concomitant]
     Active Substance: METHOCARBAMOL
  3. HYDROMORPHONE [Concomitant]
     Active Substance: HYDROMORPHONE
  4. OXYMORPHONE [Concomitant]
     Active Substance: OXYMORPHONE
  5. PREGABALIN. [Concomitant]
     Active Substance: PREGABALIN
  6. PHYTONADIONE. [Concomitant]
     Active Substance: PHYTONADIONE
  7. CHOLECALCIFEROL [Concomitant]
     Active Substance: CHOLECALCIFEROL
  8. SENNA [SENNA ALEXANDRINA] [Concomitant]
     Active Substance: SENNA LEAF
  9. ZINC SULFATE. [Concomitant]
     Active Substance: ZINC SULFATE
  10. PANTOPRAZOLE [Concomitant]
     Active Substance: PANTOPRAZOLE
  11. NEPHRO VITE RX [Concomitant]
     Active Substance: ASCORBIC ACID\BIOTIN\CALCIUM PANTOTHENATE\CYANOCOBALAMIN\FOLIC ACID\NIACINAMIDE\PYRIDOXINE HYDROCHLORIDE\RIBOFLAVIN\THIAMINE MONONITRATE
  12. POLYETHYLENE GLYCOL [Concomitant]
     Active Substance: POLYETHYLENE GLYCOLS
  13. PROPRANOLOL [Concomitant]
     Active Substance: PROPRANOLOL HYDROCHLORIDE
  14. METHOCARBAMOL. [Concomitant]
     Active Substance: METHOCARBAMOL
  15. MAGNESIUM SULFATE. [Concomitant]
     Active Substance: MAGNESIUM SULFATE
  16. ARAVA [Concomitant]
     Active Substance: LEFLUNOMIDE
  17. MIDODRINE [Concomitant]
     Active Substance: MIDODRINE
  18. PLAQUENIL [Concomitant]
     Active Substance: HYDROXYCHLOROQUINE SULFATE
  19. METHOTREXATE. [Concomitant]
     Active Substance: METHOTREXATE
  20. SUMATRIPTAN. [Concomitant]
     Active Substance: SUMATRIPTAN
  21. ONDANSETRON [Concomitant]
     Active Substance: ONDANSETRON
  22. RIFAXIMIN. [Concomitant]
     Active Substance: RIFAXIMIN
  23. POTASSIUM CHLORIDE. [Concomitant]
     Active Substance: POTASSIUM CHLORIDE
  24. RIFAXIMIN. [Concomitant]
     Active Substance: RIFAXIMIN
  25. CIPROFLOXACIN. [Concomitant]
     Active Substance: CIPROFLOXACIN
  26. FUROSEMIDE. [Concomitant]
     Active Substance: FUROSEMIDE
  27. URSODIOL. [Concomitant]
     Active Substance: URSODIOL
  28. CALCIUM CARBONATE. [Concomitant]
     Active Substance: CALCIUM CARBONATE
  29. LEUCOVORIN [FOLINIC ACID] [Concomitant]
     Active Substance: LEUCOVORIN
  30. DEXTROSE. [Concomitant]
     Active Substance: DEXTROSE
  31. HYDROXYCHLOROQUINE [Concomitant]
     Active Substance: HYDROXYCHLOROQUINE
  32. VANCOMYCIN [Concomitant]
     Active Substance: VANCOMYCIN
  33. CYCLOBENZAPRINE. [Concomitant]
     Active Substance: CYCLOBENZAPRINE
  34. LACTULOSE. [Concomitant]
     Active Substance: LACTULOSE
  35. ALBUMIN [Concomitant]
     Active Substance: ALBUMIN HUMAN
  36. SODIUM CHLORIDE. [Concomitant]
     Active Substance: SODIUM CHLORIDE
  37. METRONIDAZOLE. [Concomitant]
     Active Substance: METRONIDAZOLE
  38. BISACODYL. [Concomitant]
     Active Substance: BISACODYL
  39. ACTEMRA [Suspect]
     Active Substance: TOCILIZUMAB
     Indication: RHEUMATOID ARTHRITIS
     Route: 065
     Dates: start: 201408, end: 20170413
  40. OXYCODONE [Concomitant]
     Active Substance: OXYCODONE
  41. THIAMINE. [Concomitant]
     Active Substance: THIAMINE
  42. NOVOLOG [Concomitant]
     Active Substance: INSULIN ASPART
  43. PIPERACILLIN/TAZOBACTAM [Concomitant]
     Active Substance: PIPERACILLIN SODIUM\TAZOBACTAM SODIUM
  44. ZINC SULFATE. [Concomitant]
     Active Substance: ZINC SULFATE
  45. OCTREOTIDE. [Concomitant]
     Active Substance: OCTREOTIDE
  46. ZOLPIDEM [Concomitant]
     Active Substance: ZOLPIDEM TARTRATE

REACTIONS (1)
  - Pancreatitis acute [Recovered/Resolved]
